FAERS Safety Report 5085723-6 (Version None)
Quarter: 2006Q3

REPORT INFORMATION
  Report Type: 
  Country: None (occurrence: None)
  Receive Date: 20060822
  Receipt Date: 20060811
  Transmission Date: 20061208
  Serious: Yes (Death)
  Sender: FDA-Public Use
  Company Number: SI-JNJFOC-20060803144

PATIENT
  Sex: Female
  Weight: 78 kg

DRUGS (4)
  1. RISPERDAL [Suspect]
     Indication: SCHIZOPHRENIA
     Route: 065
  2. VENLAFAKSIN [Concomitant]
     Route: 065
  3. CUKLOPENTIKSOL [Concomitant]
     Route: 065
  4. CONTRACEPTIVES [Concomitant]
     Route: 048

REACTIONS (1)
  - DEATH [None]
